FAERS Safety Report 21395265 (Version 3)
Quarter: 2023Q1

REPORT INFORMATION
  Report Type: Report from Study
  Country: US (occurrence: US)
  Receive Date: 20220930
  Receipt Date: 20230113
  Transmission Date: 20230417
  Serious: Yes (Hospitalization, Other)
  Sender: FDA-Public Use
  Company Number: US-TAKEDA-2022TUS069008

PATIENT
  Age: 60 Year
  Sex: Female

DRUGS (9)
  1. TEDUGLUTIDE [Suspect]
     Active Substance: TEDUGLUTIDE
     Indication: Short-bowel syndrome
     Dosage: 5 MILLIGRAM, QD
     Route: 042
     Dates: start: 20190711
  2. TEDUGLUTIDE [Suspect]
     Active Substance: TEDUGLUTIDE
     Indication: Short-bowel syndrome
     Dosage: 5 MILLIGRAM, QD
     Route: 042
     Dates: start: 20190711
  3. TEDUGLUTIDE [Suspect]
     Active Substance: TEDUGLUTIDE
     Indication: Short-bowel syndrome
     Dosage: 5 MILLIGRAM, QD
     Route: 042
     Dates: start: 20190711
  4. TEDUGLUTIDE [Suspect]
     Active Substance: TEDUGLUTIDE
     Indication: Short-bowel syndrome
     Dosage: 5 MILLIGRAM, QD
     Route: 042
     Dates: start: 20190711
  5. IRON [Concomitant]
     Active Substance: IRON
     Indication: Iron deficiency
     Dosage: 65 MILLIGRAM, QD
     Route: 048
     Dates: start: 20190416
  6. ENOXAPARIN [Concomitant]
     Active Substance: ENOXAPARIN
     Indication: Deep vein thrombosis
     Dosage: 60 MILLIGRAM, BID
     Route: 058
     Dates: start: 20210305
  7. LOPERAMIDE [Concomitant]
     Active Substance: LOPERAMIDE
     Indication: Diarrhoea
     Dosage: 2 MILLIGRAM, TID
     Route: 048
     Dates: start: 20210915
  8. PANTOPRAZOLE [Concomitant]
     Active Substance: PANTOPRAZOLE
     Indication: Gastrooesophageal reflux disease
     Dosage: 40 MILLIGRAM, QD
     Route: 048
     Dates: start: 20211017
  9. NIFEDIPINE [Concomitant]
     Active Substance: NIFEDIPINE
     Indication: Hypertension
     Dosage: 60 MILLIGRAM, QD
     Route: 048
     Dates: start: 20220312

REACTIONS (1)
  - Haematological infection [Recovered/Resolved]

NARRATIVE: CASE EVENT DATE: 20220815
